FAERS Safety Report 8519335 (Version 3)
Quarter: 2012Q4

REPORT INFORMATION
  Report Type: 
  Country: FR (occurrence: FR)
  Receive Date: 20120418
  Receipt Date: 20120929
  Transmission Date: 20130627
  Serious: Yes (Life-Threatening, Hospitalization)
  Sender: FDA-Public Use
  Company Number: FR-B.I. PHARMACEUTICALS,INC./RIDGEFIELD-2012-FF-00440FF

PATIENT
  Age: 85 Year
  Sex: Male
  Weight: 70 kg

DRUGS (6)
  1. PRADAXA [Suspect]
     Indication: ATRIAL FIBRILLATION
     Dosage: 220 mg
     Route: 048
     Dates: start: 20120317, end: 20120405
  2. LASILIX SPECIAL [Concomitant]
     Indication: CARDIAC FAILURE
     Dosage: 500 mg
     Route: 048
     Dates: start: 20120317
  3. LASILIX [Concomitant]
     Indication: CARDIAC FAILURE
     Dosage: 80 mg
     Route: 048
     Dates: start: 20120317
  4. COVERSYL [Concomitant]
     Indication: CARDIAC FAILURE
     Dosage: 2 mg
     Route: 048
     Dates: start: 20120317
  5. TEMERIT [Concomitant]
     Indication: CARDIAC FAILURE
     Dosage: 2 mg
     Route: 048
     Dates: start: 20120317
  6. CORDARONE [Concomitant]
     Indication: ATRIAL FIBRILLATION
     Dosage: 200 mg
     Route: 048
     Dates: start: 20120317

REACTIONS (3)
  - Anaemia [Recovered/Resolved]
  - Rectal haemorrhage [Recovered/Resolved]
  - Renal failure [Unknown]
